FAERS Safety Report 16810995 (Version 3)
Quarter: 2020Q1

REPORT INFORMATION
  Report Type: Spontaneous
  Country: US (occurrence: US)
  Receive Date: 20190916
  Receipt Date: 20200115
  Transmission Date: 20200409
  Serious: Yes (Hospitalization, Other)
  Sender: FDA-Public Use
  Company Number: US-ELI_LILLY_AND_COMPANY-US201909003474

PATIENT
  Age: 39 Year
  Sex: Male
  Weight: 61.22 kg

DRUGS (7)
  1. TALTZ [Suspect]
     Active Substance: IXEKIZUMAB
     Indication: PSORIASIS
     Dosage: 80 MG, MONTHLY (1/M)
     Route: 065
     Dates: start: 2019
  2. TALTZ [Suspect]
     Active Substance: IXEKIZUMAB
     Dosage: 80 MG, MONTHLY (1/M)
     Route: 065
     Dates: start: 2019
  3. ELIQUIS [Concomitant]
     Active Substance: APIXABAN
  4. TALTZ [Suspect]
     Active Substance: IXEKIZUMAB
     Dosage: 80 MG, MONTHLY (1/M)
     Route: 065
     Dates: start: 2019
  5. TALTZ [Suspect]
     Active Substance: IXEKIZUMAB
     Dosage: 80 MG, MONTHLY (1/M)
     Route: 065
     Dates: start: 2019
  6. TALTZ [Suspect]
     Active Substance: IXEKIZUMAB
     Dosage: 80 MG, UNKNOWN
     Route: 065
     Dates: start: 201907, end: 201907
  7. TALTZ [Suspect]
     Active Substance: IXEKIZUMAB
     Dosage: 80 MG, MONTHLY (1/M)
     Route: 065
     Dates: start: 2019

REACTIONS (9)
  - Ear infection [Unknown]
  - Cyst [Unknown]
  - Pharyngitis streptococcal [Unknown]
  - Inflammatory bowel disease [Unknown]
  - Weight decreased [Unknown]
  - Large intestine perforation [Recovering/Resolving]
  - Lymphadenopathy [Unknown]
  - Megacolon [Not Recovered/Not Resolved]
  - Colitis ulcerative [Unknown]

NARRATIVE: CASE EVENT DATE: 201906
